FAERS Safety Report 16428216 (Version 2)
Quarter: 2019Q3

REPORT INFORMATION
  Report Type: Spontaneous
  Country: IT (occurrence: IT)
  Receive Date: 20190613
  Receipt Date: 20190708
  Transmission Date: 20191004
  Serious: Yes (Other)
  Sender: FDA-Public Use
  Company Number: IT-PFIZER INC-2019254581

PATIENT
  Age: 55 Year
  Sex: Male
  Weight: 84 kg

DRUGS (1)
  1. TRIATEC [RAMIPRIL] [Suspect]
     Active Substance: RAMIPRIL
     Indication: BLOOD PRESSURE ABNORMAL
     Dosage: 5 MG (0.5 DOSAGE FORM), QD
     Route: 048
     Dates: start: 2019

REACTIONS (2)
  - Skin disorder [Recovering/Resolving]
  - Herpes zoster [Recovered/Resolved]
